FAERS Safety Report 21341241 (Version 2)
Quarter: 2023Q4

REPORT INFORMATION
  Report Type: Spontaneous
  Country: GB (occurrence: GB)
  Receive Date: 20220916
  Receipt Date: 20231229
  Transmission Date: 20240110
  Serious: Yes (Death, Hospitalization, Other)
  Sender: FDA-Public Use
  Company Number: GB-ALKEM LABORATORIES LIMITED-CN-ALKEM-2022-09661

PATIENT
  Age: 41 Year
  Sex: Male

DRUGS (1)
  1. COLCHICINE [Suspect]
     Active Substance: COLCHICINE
     Indication: Gout
     Dosage: 27 MILLIGRAM (OVER 24-48 H)
     Route: 065

REACTIONS (9)
  - Myocardial injury [Fatal]
  - Acute respiratory failure [Fatal]
  - Acute kidney injury [Fatal]
  - Metabolic acidosis [Fatal]
  - Cardiac arrest [Fatal]
  - Accidental overdose [Fatal]
  - Abdominal pain [Unknown]
  - Diarrhoea [Unknown]
  - Vomiting [Unknown]
